FAERS Safety Report 17139246 (Version 1)
Quarter: 2019Q4

REPORT INFORMATION
  Report Type: Spontaneous
  Country: US (occurrence: US)
  Receive Date: 20191210
  Receipt Date: 20191210
  Transmission Date: 20200122
  Serious: No
  Sender: FDA-Public Use
  Company Number: None

PATIENT
  Age: 79 Year
  Sex: Female
  Weight: 71.4 kg

DRUGS (15)
  1. FISH OIL [Concomitant]
     Active Substance: FISH OIL
  2. FLAXSEED [Concomitant]
     Active Substance: FLAX SEED
  3. VITAMIN D [Concomitant]
     Active Substance: VITAMIN D NOS
  4. BRAFTOVI [Suspect]
     Active Substance: ENCORAFENIB
     Route: 048
  5. MEKTOVI [Concomitant]
     Active Substance: BINIMETINIB
  6. METFORMIN [Concomitant]
     Active Substance: METFORMIN HYDROCHLORIDE
  7. COQ10 [Concomitant]
     Active Substance: UBIDECARENONE
  8. DEXAMETHASONE. [Concomitant]
     Active Substance: DEXAMETHASONE
  9. OXYBUTININ [Concomitant]
     Active Substance: OXYBUTYNIN
  10. ESCITALOPRAM [Concomitant]
     Active Substance: ESCITALOPRAM OXALATE
  11. ROSUVASTATIN. [Concomitant]
     Active Substance: ROSUVASTATIN
  12. ACIDOPHILUS [Concomitant]
     Active Substance: LACTOBACILLUS ACIDOPHILUS
  13. COLACE [Concomitant]
     Active Substance: DOCUSATE SODIUM
  14. KEPPRA [Concomitant]
     Active Substance: LEVETIRACETAM
  15. SUPER B COMPLEX [Concomitant]
     Active Substance: CYANOCOBALAMIN\DEXPANTHENOL\NIACINAMIDE\PYRIDOXINE HYDROCHLORIDE\RIBOFLAVIN 5^-PHOSPHATE SODIUM\THIAMINE HYDROCHLORIDE\VITAMIN B COMPLEX

REACTIONS (2)
  - Rash [None]
  - Therapy cessation [None]

NARRATIVE: CASE EVENT DATE: 20190901
